FAERS Safety Report 4377113-6 (Version None)
Quarter: 2004Q2

REPORT INFORMATION
  Report Type: 
  Country: None (occurrence: None)
  Receive Date: 20040608
  Receipt Date: 19350913
  Transmission Date: 20050107
  Serious: Yes (Hospitalization)
  Sender: FDA-Public Use
  Company Number: BEI-004265

PATIENT
  Age: 67 Year
  Sex: Female

DRUGS (9)
  1. IOMERON-300 [Suspect]
     Dosage: 100ML;IA
     Route: 014
     Dates: start: 20030331, end: 20030331
  2. IOMERON-300 [Suspect]
     Indication: COMPUTERISED TOMOGRAM
     Dosage: 50 ML; IV
     Route: 042
     Dates: start: 20030331, end: 20030331
  3. IOMERON-300 [Suspect]
     Indication: HEPATIC NEOPLASM MALIGNANT
     Dosage: 100 ML, INTRAVENOUS
     Route: 042
     Dates: start: 20030318, end: 20030318
  4. METHYCOBAL IMECOBALAMIN) [Concomitant]
  5. LASIX [Concomitant]
  6. ALFAROL, (ALFACALCIDOL) [Concomitant]
  7. STOGAR [Concomitant]
  8. ALDACTONE [Concomitant]
  9. ATELEC, (CLINIDIPINE) [Concomitant]

REACTIONS (3)
  - CONDITION AGGRAVATED [None]
  - CRYOGLOBULINAEMIA [None]
  - HAEMODIALYSIS [None]
